FAERS Safety Report 12077159 (Version 2)
Quarter: 2016Q1

REPORT INFORMATION
  Report Type: Spontaneous
  Country: FR (occurrence: FR)
  Receive Date: 20160215
  Receipt Date: 20160225
  Transmission Date: 20160526
  Serious: Yes (Death, Other)
  Sender: FDA-Public Use
  Company Number: FR-GLAXOSMITHKLINE-FR2016GSK020377

PATIENT
  Age: 89 Year
  Sex: Male

DRUGS (13)
  1. TEMERIT [Concomitant]
     Active Substance: NEBIVOLOL
  2. AMLOR [Concomitant]
     Active Substance: AMLODIPINE BESYLATE
     Dosage: UNK
     Dates: end: 20151215
  3. ATACAND [Concomitant]
     Active Substance: CANDESARTAN CILEXETIL
  4. RIVOTRIL [Concomitant]
     Active Substance: CLONAZEPAM
  5. LAMICTAL [Suspect]
     Active Substance: LAMOTRIGINE
     Indication: EPILEPSY
     Dosage: 25 MG, UNK
     Route: 048
     Dates: start: 20151203, end: 20151215
  6. EFFEXOR [Suspect]
     Active Substance: VENLAFAXINE HYDROCHLORIDE
     Indication: PRODUCT USED FOR UNKNOWN INDICATION
     Dosage: 37.5 MG, QD
     Route: 048
     Dates: start: 20151203, end: 20151215
  7. TAHOR [Concomitant]
     Active Substance: ATORVASTATIN CALCIUM
     Dosage: UNK
     Dates: end: 20151215
  8. DUOPLAVIN [Concomitant]
     Active Substance: ASPIRIN\CLOPIDOGREL
     Dosage: UNK
     Dates: end: 20151215
  9. CORTISONE ACETATE. [Concomitant]
     Active Substance: CORTISONE ACETATE
     Indication: IMMUNE THROMBOCYTOPENIC PURPURA
     Dosage: UNK
  10. NEXIUM [Concomitant]
     Active Substance: ESOMEPRAZOLE MAGNESIUM
     Dosage: UNK
     Dates: end: 20151215
  11. STERDEX [Concomitant]
     Active Substance: DEXAMETHASONE\OXYTETRACYCLINE
  12. DISULONE [Suspect]
     Active Substance: DAPSONE\FERROUS OXALATE
     Indication: IMMUNE THROMBOCYTOPENIC PURPURA
     Dosage: UNK
     Route: 048
     Dates: start: 201510, end: 20151215
  13. LASILIX [Concomitant]
     Active Substance: FUROSEMIDE

REACTIONS (3)
  - Acute kidney injury [Fatal]
  - Drug reaction with eosinophilia and systemic symptoms [Fatal]
  - Hepatitis acute [Fatal]

NARRATIVE: CASE EVENT DATE: 201512
